FAERS Safety Report 22516869 (Version 1)
Quarter: 2023Q2

REPORT INFORMATION
  Report Type: Spontaneous
  Country: GB (occurrence: GB)
  Receive Date: 20230603
  Receipt Date: 20230603
  Transmission Date: 20230722
  Serious: Yes (Other)
  Sender: FDA-Public Use
  Company Number: GB-MHRA-MED-202305241109165730-KCRZN

PATIENT
  Age: 79 Year
  Sex: Female

DRUGS (1)
  1. PIRFENIDONE [Suspect]
     Active Substance: PIRFENIDONE
     Indication: Product used for unknown indication
     Dosage: 2403 MILLIGRAM DAILY; 267MG 9 TIMES PER DAY
     Route: 065

REACTIONS (9)
  - Loss of consciousness [Unknown]
  - Fatigue [Unknown]
  - Disorientation [Unknown]
  - Nausea [Unknown]
  - Feeding disorder [Unknown]
  - Hyperhidrosis [Unknown]
  - Performance fear [Unknown]
  - Malaise [Unknown]
  - Lethargy [Unknown]

NARRATIVE: CASE EVENT DATE: 20230501
